FAERS Safety Report 6307493-3 (Version None)
Quarter: 2009Q3

REPORT INFORMATION
  Report Type: 
  Country: None (occurrence: None)
  Receive Date: 20090813
  Receipt Date: 20071112
  Transmission Date: 20100115
  Serious: Yes (Other)
  Sender: FDA-Public Use
  Company Number: US-ASTRAZENECA-2007UW02309

PATIENT
  Age: 19771 Day
  Sex: Male
  Weight: 127 kg

DRUGS (21)
  1. SEROQUEL [Suspect]
     Indication: SCHIZOPHRENIA, PARANOID TYPE
     Dosage: 400 MG - 600 MG
     Route: 048
     Dates: start: 20020612
  2. SEROQUEL [Suspect]
     Route: 048
     Dates: start: 20031110
  3. SEROQUEL [Suspect]
     Dosage: 200 MG, 2 TABLETS DAILY
     Route: 048
     Dates: start: 20070507
  4. AMANTADINE HCL [Concomitant]
     Route: 048
     Dates: start: 19990202
  5. AMANTADINE HCL [Concomitant]
     Route: 048
     Dates: start: 20020612
  6. ATIVAN [Concomitant]
     Indication: ANXIETY
     Route: 048
     Dates: start: 19960131
  7. ATIVAN [Concomitant]
     Route: 048
     Dates: start: 19970417, end: 20020101
  8. COGENTIN [Concomitant]
     Route: 048
     Dates: start: 19970417
  9. RISPERDAL [Concomitant]
     Indication: SCHIZOPHRENIA, PARANOID TYPE
     Route: 048
     Dates: start: 19950901, end: 19981101
  10. RISPERDAL [Concomitant]
     Route: 048
     Dates: start: 19960321
  11. RISPERDAL [Concomitant]
     Route: 048
     Dates: start: 19970616
  12. RISPERDAL [Concomitant]
     Route: 048
     Dates: start: 19980331
  13. ZYPREXA [Concomitant]
     Route: 048
     Dates: start: 19981203
  14. ZYPREXA [Concomitant]
     Route: 048
     Dates: start: 19990722
  15. ZYPREXA [Concomitant]
     Route: 048
     Dates: start: 20001205, end: 20011120
  16. ISOSORBIDE [Concomitant]
     Route: 048
     Dates: start: 20020612
  17. METOPROLOL [Concomitant]
     Dosage: 50 - 200 MG
     Route: 048
     Dates: start: 20020612
  18. LIPITOR [Concomitant]
     Route: 048
     Dates: start: 20050824
  19. NITROGLYCERIN [Concomitant]
     Dosage: 0.4 MG, 1 TABLET AS REQUIRED
     Dates: start: 20031229
  20. PRILOSEC [Concomitant]
     Route: 048
     Dates: start: 20070507
  21. ACIPHEX [Concomitant]
     Dates: start: 20020612

REACTIONS (4)
  - DIABETES MELLITUS [None]
  - DIABETIC NEUROPATHY [None]
  - NEUROPATHY PERIPHERAL [None]
  - TYPE 2 DIABETES MELLITUS [None]
